FAERS Safety Report 5906133-2 (Version None)
Quarter: 2008Q4

REPORT INFORMATION
  Report Type: 
  Country: None (occurrence: None)
  Receive Date: 20081002
  Receipt Date: 20080925
  Transmission Date: 20090506
  Serious: Yes (Other)
  Sender: FDA-Public Use
  Company Number: PHHY2008FR22851

PATIENT
  Age: 75 Year
  Sex: Male

DRUGS (4)
  1. STALEVO 100 [Suspect]
     Dosage: UNK
     Dates: start: 20060101, end: 20060101
  2. STALEVO 100 [Suspect]
     Dosage: UNK
     Dates: end: 20080801
  3. KARDEGIC [Suspect]
  4. PLAVIX [Suspect]

REACTIONS (1)
  - EPISTAXIS [None]
